FAERS Safety Report 6486498-6 (Version None)
Quarter: 2009Q4

REPORT INFORMATION
  Report Type: 
  Country: None (occurrence: None)
  Receive Date: 20091210
  Receipt Date: 20091202
  Transmission Date: 20100525
  Serious: Yes (Hospitalization)
  Sender: FDA-Public Use
  Company Number: US-JNJFOC-20091201734

PATIENT
  Sex: Male
  Weight: 77.11 kg

DRUGS (7)
  1. DURAGESIC-100 [Suspect]
     Indication: NEPHROLITHIASIS
     Route: 062
     Dates: start: 20030101, end: 20091101
  2. DURAGESIC-100 [Suspect]
     Route: 062
     Dates: start: 20091101
  3. VALIUM [Concomitant]
     Indication: MUSCLE SPASMS
     Dosage: AT BEDTIME
     Route: 048
  4. UROQID-ACID [Concomitant]
     Indication: CYSTITIS
     Route: 048
  5. BACLOFEN [Concomitant]
     Indication: MUSCLE SPASMS
     Route: 048
  6. NEURONTIN [Concomitant]
     Indication: MUSCLE SPASMS
     Route: 048
  7. TRILEPTAL [Concomitant]
     Indication: MUSCLE SPASMS
     Route: 048

REACTIONS (5)
  - INADEQUATE ANALGESIA [None]
  - MUSCLE SPASMS [None]
  - NEPHROLITHIASIS [None]
  - SEPSIS [None]
  - URINARY TRACT INFECTION [None]
